FAERS Safety Report 8537485 (Version 2)
Quarter: 2013Q2

REPORT INFORMATION
  Report Type: Spontaneous
  Country: US (occurrence: None)
  Receive Date: 20120315
  Receipt Date: 20120703
  Transmission Date: 20140414
  Serious: Yes (Other)
  Sender: FDA-Public Use
  Company Number: PHHY2011US35021

PATIENT
  Age: 61 Year
  Sex: Male

DRUGS (13)
  1. GILENYA [Suspect]
     Indication: MULTIPLE SCLEROSIS
     Route: 048
     Dates: start: 20110114, end: 20110331
  2. ALLOPURINOL (ALLOPURINOL) [Concomitant]
  3. ATIVAN (LORAZEPAM) [Concomitant]
  4. BACLOFEN (BACLOFEN) [Concomitant]
  5. CRESTOR (ROSUVASTATIN CALCIUM) [Concomitant]
  6. CARDURA (DOXAZOSIN MESILATE) [Concomitant]
  7. HYDROCHLOROTHIAZIDE WITH TRIAMTERENE (HYDROCHLOROTHIAZIDE, TRIAMETERENE) [Concomitant]
  8. LISINOPRIL (LISINOPRIL) [Concomitant]
  9. NEURONTIN (GABAPENTIN) [Concomitant]
  10. NORVASC (AMLODIPINE BESILATE) [Concomitant]
  11. PAXIL (PAROXETINE HYDROCHLORIDE) [Concomitant]
  12. PROVIGIL (MODAFINIL) [Concomitant]
  13. PROZAC (FLUOXETINE HYDROCHLORIDE) [Concomitant]

REACTIONS (4)
  - VISION BLURRED [None]
  - Balance disorder [None]
  - MACULAR OEDEMA [None]
  - MUSCULAR WEAKNESS [None]
